FAERS Safety Report 7237243-8 (Version None)
Quarter: 2011Q1

REPORT INFORMATION
  Report Type: 
  Country: None (occurrence: None)
  Receive Date: 20110121
  Receipt Date: 20110113
  Transmission Date: 20110831
  Serious: Yes (Other)
  Sender: FDA-Public Use
  Company Number: GB-ASTELLAS-2011EU000253

PATIENT
  Age: 63 Year
  Sex: Male

DRUGS (4)
  1. CORTICOSTEROID NOS [Suspect]
     Indication: RENAL TRANSPLANT
     Dosage: UNK
     Route: 050
  2. AZATHIOPRINE [Suspect]
     Indication: RENAL TRANSPLANT
     Dosage: UNK
     Route: 065
  3. TACROLIMUS [Suspect]
     Indication: RENAL TRANSPLANT
     Dosage: 0.1 MG/KG, UNKNOWN/D
     Route: 065
  4. BASILIXIMAB [Suspect]
     Indication: RENAL TRANSPLANT
     Dosage: UNK
     Route: 065

REACTIONS (1)
  - APLASIA PURE RED CELL [None]
